FAERS Safety Report 5065354-4 (Version None)
Quarter: 2006Q3

REPORT INFORMATION
  Report Type: 
  Country: None (occurrence: None)
  Receive Date: 20060731
  Receipt Date: 20060724
  Transmission Date: 20061208
  Serious: Yes (Hospitalization)
  Sender: FDA-Public Use
  Company Number: BJ-BRISTOL-MYERS SQUIBB COMPANY-13451513

PATIENT
  Age: 40 Year
  Sex: Male

DRUGS (4)
  1. GATIFLOXACIN TABS [Suspect]
     Indication: TUBERCULOSIS
     Route: 048
  2. ISONIAZID [Suspect]
     Indication: TUBERCULOSIS
  3. RIFAMPIN [Suspect]
     Indication: TUBERCULOSIS
  4. PYRAZINAMIDE [Suspect]
     Indication: TUBERCULOSIS

REACTIONS (1)
  - HYPERGLYCAEMIA [None]
